FAERS Safety Report 4624050-5 (Version None)
Quarter: 2005Q1

REPORT INFORMATION
  Report Type: 
  Country: None (occurrence: None)
  Receive Date: 20050329
  Receipt Date: 20050316
  Transmission Date: 20050727
  Serious: Yes (Other)
  Sender: FDA-Public Use
  Company Number: 2005046269

PATIENT
  Age: 63 Year

DRUGS (6)
  1. SULFASALAZINE [Suspect]
     Indication: RHEUMATOID ARTHRITIS
     Dosage: (2 GRAM, UNKNOWN); ORAL
     Route: 048
     Dates: start: 20020101, end: 20041013
  2. NABUMETONE [Concomitant]
  3. SIMVASTATIN [Concomitant]
  4. CAPTOPRIL [Concomitant]
  5. CIPROFIBRATE [Concomitant]
  6. ALL OTHER THERAPEUTIC PRODUCTS [Concomitant]

REACTIONS (3)
  - ANXIETY [None]
  - PERSONALITY CHANGE [None]
  - RESTLESSNESS [None]
